FAERS Safety Report 5629919-0 (Version None)
Quarter: 2008Q1

REPORT INFORMATION
  Report Type: 
  Country: None (occurrence: None)
  Receive Date: 20080213
  Receipt Date: 20080205
  Transmission Date: 20080703
  Serious: Yes (Other)
  Sender: FDA-Public Use
  Company Number: 2008SP002728

PATIENT
  Age: 11 Year
  Sex: Male

DRUGS (4)
  1. NASONEX [Suspect]
     Indication: RHINITIS
     Dosage: NAS
     Route: 045
     Dates: start: 20071201, end: 20080203
  2. KEPPRA [Concomitant]
  3. OSPOLOT [Concomitant]
  4. BENADON [Concomitant]

REACTIONS (1)
  - CONVULSION [None]
